FAERS Safety Report 12684402 (Version 2)
Quarter: 2016Q4

REPORT INFORMATION
  Report Type: Spontaneous
  Country: US (occurrence: US)
  Receive Date: 20160825
  Receipt Date: 20161007
  Transmission Date: 20170207
  Serious: Yes (Hospitalization, Other)
  Sender: FDA-Public Use
  Company Number: US-BAYER-2016-161441

PATIENT
  Age: 50 Year
  Sex: Female

DRUGS (4)
  1. STIVARGA [Suspect]
     Active Substance: REGORAFENIB
     Indication: COLON CANCER METASTATIC
     Dosage: 120 MG FOR 3 WEEKS ON AND ONE WEEK OFF
     Dates: start: 20160908
  2. STIVARGA [Suspect]
     Active Substance: REGORAFENIB
     Indication: COLON CANCER METASTATIC
     Dosage: 160 MG, QD
     Route: 048
  3. STIVARGA [Suspect]
     Active Substance: REGORAFENIB
     Indication: RECTAL CANCER
     Dosage: 120 MG DAILY
     Route: 048
     Dates: start: 20160814
  4. STIVARGA [Suspect]
     Active Substance: REGORAFENIB
     Indication: COLON CANCER METASTATIC
     Dosage: 160 MG DAILY
     Route: 048
     Dates: start: 20160718, end: 201608

REACTIONS (5)
  - Musculoskeletal chest pain [Recovered/Resolved]
  - Metastases to lung [None]
  - Pneumothorax spontaneous [Recovered/Resolved]
  - Hypertension [Recovered/Resolved]
  - Weight decreased [None]

NARRATIVE: CASE EVENT DATE: 201608
